FAERS Safety Report 10335980 (Version 1)
Quarter: 2014Q3

REPORT INFORMATION
  Report Type: Spontaneous
  Country: US (occurrence: US)
  Receive Date: 20140723
  Receipt Date: 20140723
  Transmission Date: 20150326
  Serious: Yes (Hospitalization)
  Sender: FDA-Public Use
  Company Number: US-BRISTOL-MYERS SQUIBB COMPANY-19426188

PATIENT
  Age: 86 Year
  Sex: Male

DRUGS (17)
  1. METFORMIN HCL [Concomitant]
     Active Substance: METFORMIN HYDROCHLORIDE
     Dosage: TABLET
     Route: 048
     Dates: start: 2005
  2. ALLOPURINOL. [Concomitant]
     Active Substance: ALLOPURINOL
     Dates: start: 2011
  3. NATEGLINIDE. [Concomitant]
     Active Substance: NATEGLINIDE
     Dates: start: 2005
  4. MAGNESIUM [Concomitant]
     Active Substance: MAGNESIUM
  5. FISH OIL [Concomitant]
     Active Substance: FISH OIL
  6. COUMADIN [Suspect]
     Active Substance: WARFARIN SODIUM
     Dosage: 3 MG FOUR TIMES A WEEK.
     Dates: start: 2006
  7. ISOSORBIDE MONONITRATE. [Concomitant]
     Active Substance: ISOSORBIDE MONONITRATE
     Dates: start: 2000
  8. SPIRONOLACTONE. [Concomitant]
     Active Substance: SPIRONOLACTONE
     Dates: start: 2008
  9. SIMVASTATIN. [Concomitant]
     Active Substance: SIMVASTATIN
     Dates: start: 2009
  10. LISINOPRIL. [Concomitant]
     Active Substance: LISINOPRIL
     Dates: start: 2007
  11. OMEPRAZOLE. [Concomitant]
     Active Substance: OMEPRAZOLE
     Dates: start: 2001
  12. VITAMIN B12 [Concomitant]
     Active Substance: CYANOCOBALAMIN
  13. GLUCOSAMINE [Concomitant]
     Active Substance: GLUCOSAMINE
  14. PROBIOTICA [Concomitant]
     Active Substance: PROBIOTICS NOS
  15. FUROSEMIDE. [Concomitant]
     Active Substance: FUROSEMIDE
     Dosage: 40MG.2/1/WEEK,40 MG,2 IN 1 WK,40 MG,1 IN 1 D,40 MG,1 IN 1 TOTAL,40 MG,2 IN 1 D,10-JUN-2012-STOPPED.
     Dates: start: 2009
  16. CARVEDILOL. [Concomitant]
     Active Substance: CARVEDILOL
     Dosage: TABLET
     Route: 048
     Dates: start: 2008
  17. VITAMIN D [Concomitant]
     Active Substance: CHOLECALCIFEROL

REACTIONS (1)
  - International normalised ratio increased [Recovered/Resolved]

NARRATIVE: CASE EVENT DATE: 20130420
